FAERS Safety Report 9357845 (Version 2)
Quarter: 2013Q3

REPORT INFORMATION
  Report Type: Spontaneous
  Country: JP (occurrence: JP)
  Receive Date: 20130620
  Receipt Date: 20130729
  Transmission Date: 20140515
  Serious: Yes (Other)
  Sender: FDA-Public Use
  Company Number: JP-ASTELLAS-2013JP006083

PATIENT
  Age: 57 Year
  Sex: Male
  Weight: 61.8 kg

DRUGS (10)
  1. BETANIS [Suspect]
     Indication: HYPERTONIC BLADDER
     Dosage: 25 MG, UID/QD
     Route: 048
     Dates: start: 20130212, end: 20130401
  2. FEBURIC [Concomitant]
     Indication: HYPERURICAEMIA
     Dosage: 10 MG, UID/QD
     Route: 048
     Dates: start: 20040812
  3. LIPITOR [Concomitant]
     Indication: HYPERLIPIDAEMIA
     Dosage: 5 MG, UID/QD
     Route: 048
     Dates: start: 20040812
  4. CALTAN [Concomitant]
     Indication: HYPERPHOSPHATAEMIA
     Dosage: 500 MG, UNKNOWN/D
     Route: 048
     Dates: start: 20040812
  5. CALTAN [Concomitant]
     Indication: HYPOCALCAEMIA
  6. REMITCH [Concomitant]
     Indication: PRURITUS
     Dosage: 2.5 UG, UID/QD
     Route: 048
     Dates: start: 20120906
  7. TAKEPRON [Concomitant]
     Indication: GASTRIC ULCER
     Dosage: 30 MG, UID/QD
     Route: 048
     Dates: start: 20120925
  8. SHAKUYAKUKANZOTO [Concomitant]
     Indication: MUSCLE SPASMS
     Dosage: 1.25 G, BID
     Route: 048
     Dates: start: 20121006
  9. VASOLAN                            /00014302/ [Concomitant]
     Indication: SUPRAVENTRICULAR TACHYCARDIA
     Dosage: 20 MG, BID
     Route: 048
     Dates: start: 20121225, end: 20130408
  10. ARTIST [Concomitant]
     Indication: SUPRAVENTRICULAR TACHYCARDIA
     Dosage: 2.5 MG, UID/QD
     Route: 048
     Dates: start: 20121225

REACTIONS (1)
  - Cardiac failure [Recovered/Resolved]
